FAERS Safety Report 12910768 (Version 1)
Quarter: 2016Q4

REPORT INFORMATION
  Report Type: Spontaneous
  Country: US (occurrence: US)
  Receive Date: 20161103
  Receipt Date: 20161103
  Transmission Date: 20170207
  Serious: No
  Sender: FDA-Public Use
  Company Number: None

PATIENT
  Age: 35 Year
  Sex: Female
  Weight: 63.56 kg

DRUGS (2)
  1. SKYLA [Suspect]
     Active Substance: LEVONORGESTREL
     Dates: start: 20160916, end: 20161103
  2. FLOVENT HFA [Concomitant]
     Active Substance: FLUTICASONE PROPIONATE

REACTIONS (8)
  - Fatigue [None]
  - Breast tenderness [None]
  - Nausea [None]
  - Abdominal distension [None]
  - Vaginal haemorrhage [None]
  - Affective disorder [None]
  - Anxiety [None]
  - Muscle spasms [None]

NARRATIVE: CASE EVENT DATE: 20161103
